FAERS Safety Report 10952441 (Version 1)
Quarter: 2015Q1

REPORT INFORMATION
  Report Type: Spontaneous
  Country: US (occurrence: None)
  Receive Date: 20150324
  Receipt Date: 20150324
  Transmission Date: 20150721
  Serious: Yes (Hospitalization)
  Sender: FDA-Public Use
  Company Number: None

PATIENT
  Age: 78 Year
  Sex: Male
  Weight: 73 kg

DRUGS (18)
  1. MYCOPHENOLATE MOFETIL. [Concomitant]
     Active Substance: MYCOPHENOLATE MOFETIL
  2. MULTIVITAMIN [Concomitant]
     Active Substance: VITAMINS
  3. RAMIPRIL. [Concomitant]
     Active Substance: RAMIPRIL
  4. ASPIRIN. [Concomitant]
     Active Substance: ASPIRIN
  5. VERAPAMIL [Concomitant]
     Active Substance: VERAPAMIL HYDROCHLORIDE
  6. VALTREX [Concomitant]
     Active Substance: VALACYCLOVIR HYDROCHLORIDE
  7. AZITHROMYCIN [Concomitant]
     Active Substance: AZITHROMYCIN ANHYDROUS
  8. HARVONI [Suspect]
     Active Substance: LEDIPASVIR\SOFOSBUVIR
     Indication: HEPATITIS C
     Route: 048
     Dates: start: 20150102
  9. POTASSIUM CHLORIDE. [Concomitant]
     Active Substance: POTASSIUM CHLORIDE
  10. VANCOMYCIN [Concomitant]
     Active Substance: VANCOMYCIN
  11. LASIX [Concomitant]
     Active Substance: FUROSEMIDE
  12. CARVEDILOL. [Concomitant]
     Active Substance: CARVEDILOL
  13. FAMOTIDINE. [Concomitant]
     Active Substance: FAMOTIDINE
  14. AZTREONAM. [Concomitant]
     Active Substance: AZTREONAM
  15. HEPARIN [Concomitant]
     Active Substance: HEPARIN SODIUM
  16. ALBUTEROL. [Concomitant]
     Active Substance: ALBUTEROL
  17. RAPAMUNE [Concomitant]
     Active Substance: SIROLIMUS
  18. TYLENOL [Concomitant]
     Active Substance: ACETAMINOPHEN

REACTIONS (1)
  - Pulmonary toxicity [None]

NARRATIVE: CASE EVENT DATE: 20150122
